FAERS Safety Report 4853475-8 (Version None)
Quarter: 2005Q4

REPORT INFORMATION
  Report Type: 
  Country: None (occurrence: None)
  Receive Date: 20051212
  Receipt Date: 20051122
  Transmission Date: 20060501
  Serious: No
  Sender: FDA-Public Use
  Company Number: CA_050107646

PATIENT
  Age: 79 Year
  Sex: Female
  Weight: 63.6 kg

DRUGS (10)
  1. FORTEO [Suspect]
     Indication: OSTEOPOROSIS
     Dosage: 20 UG, DAILY (1/D)
     Dates: start: 20041030
  2. EVISTA [Suspect]
     Dosage: DAILY (1/D)
  3. SYNTHROID [Concomitant]
  4. LOSEC (OMEPRAZOLE SODIUM) [Concomitant]
  5. SINGULAIR [Concomitant]
  6. FLOVENT [Concomitant]
  7. VITAMIN D [Concomitant]
  8. ZOCOR (SIMVASTATIN RATIOPHARM) [Concomitant]
  9. CALCIUM (CALCIUM) [Concomitant]
  10. FORTEO [Concomitant]

REACTIONS (5)
  - ARTHRITIS [None]
  - INSOMNIA [None]
  - OSTEOLYSIS [None]
  - PALPITATIONS [None]
  - PRURITUS [None]
